FAERS Safety Report 10791278 (Version 1)
Quarter: 2015Q1

REPORT INFORMATION
  Report Type: Spontaneous
  Country: US (occurrence: US)
  Receive Date: 20150213
  Receipt Date: 20150213
  Transmission Date: 20150721
  Serious: No
  Sender: FDA-Public Use
  Company Number: US-GLAXOSMITHKLINE-A1049616A

PATIENT

DRUGS (1)
  1. NICODERM CQ [Suspect]
     Active Substance: NICOTINE
     Indication: EX-TOBACCO USER

REACTIONS (6)
  - Skin warm [Unknown]
  - Erythema [Unknown]
  - Gastric mucosa erythema [Unknown]
  - Accidental exposure to product [Unknown]
  - Burning sensation [Recovered/Resolved]
  - Pain [Unknown]
